FAERS Safety Report 5938460-7 (Version None)
Quarter: 2008Q4

REPORT INFORMATION
  Report Type: 
  Country: None (occurrence: None)
  Receive Date: 20081103
  Receipt Date: 20081027
  Transmission Date: 20090506
  Serious: Yes (Other)
  Sender: FDA-Public Use
  Company Number: GB-AVENTIS-200610640GDDC

PATIENT
  Age: 73 Year
  Sex: Male
  Weight: 87.9 kg

DRUGS (8)
  1. STUDY MEDICATION NOT GIVEN [Suspect]
  2. INSULIN GLARGINE [Suspect]
     Indication: DIABETES MELLITUS
     Route: 058
     Dates: start: 20050805, end: 20060130
  3. OPTIPEN (INSULIN PUMP) [Suspect]
  4. ZESTRIL [Concomitant]
     Indication: HYPERTENSION
     Route: 048
  5. ASPIRIN [Concomitant]
     Route: 048
  6. PHYSIOTENS [Concomitant]
     Indication: HYPERTENSION
     Route: 048
  7. CRESTOR [Concomitant]
     Route: 048
  8. ISTIN [Concomitant]
     Indication: ANGINA PECTORIS
     Route: 048

REACTIONS (4)
  - DYSARTHRIA [None]
  - FACIAL PARESIS [None]
  - PARAESTHESIA [None]
  - TRANSIENT ISCHAEMIC ATTACK [None]
